FAERS Safety Report 8618618-9 (Version None)
Quarter: 2012Q3

REPORT INFORMATION
  Report Type: 
  Country: None (occurrence: None)
  Receive Date: 20120814
  Receipt Date: 20120814
  Transmission Date: 20120928
  Serious: Yes (Death)
  Sender: FDA-Public Use
  Company Number: None

PATIENT
  Age: 80 Year
  Sex: Female
  Weight: 68.49 kg

DRUGS (2)
  1. ASPIRIN [Suspect]
     Indication: PROPHYLAXIS
     Dosage: ASPIRIN 325 MG -NOT EC- DAILY PO
     Route: 048
     Dates: start: 20120716, end: 20120717
  2. ENOXAPARIN [Suspect]
     Indication: THROMBOSIS PROPHYLAXIS
     Dosage: ENOXAPARIN 40 MG DAILY SQ
     Route: 058
     Dates: start: 20120712, end: 20120717

REACTIONS (2)
  - SHOCK HAEMORRHAGIC [None]
  - HAEMORRHAGIC ANAEMIA [None]
